FAERS Safety Report 9169673 (Version 1)
Quarter: 2013Q1

REPORT INFORMATION
  Report Type: Spontaneous
  Country: US (occurrence: US)
  Receive Date: 20130318
  Receipt Date: 20130318
  Transmission Date: 20140127
  Serious: Yes (Hospitalization, Other)
  Sender: FDA-Public Use
  Company Number: US-PFIZER INC-2013086183

PATIENT
  Age: 50 Year
  Sex: Female

DRUGS (5)
  1. FLUOROURACIL [Suspect]
     Indication: COLON CANCER STAGE III
     Dosage: 400 MG/M2, CYCLIC
     Route: 040
  2. FLUOROURACIL [Suspect]
     Dosage: 2400 MG/M2, OVER 46 HOURS
     Route: 042
  3. OXALIPLATIN [Concomitant]
     Indication: COLON CANCER STAGE III
     Dosage: 85 MG/M2, DAY 1
     Route: 042
  4. LEUCOVORIN [Concomitant]
     Indication: COLON CANCER STAGE III
     Dosage: 400 MG/M2, OVER 2 HOURS
     Route: 042
  5. BEVACIZUMAB [Concomitant]
     Indication: COLON CANCER STAGE III
     Dosage: 5 MG/KG, EVERY 2 WEEKS

REACTIONS (1)
  - Leukoencephalopathy [Recovered/Resolved with Sequelae]
